FAERS Safety Report 8770675 (Version 1)
Quarter: 2012Q4

REPORT INFORMATION
  Report Type: 
  Country: US (occurrence: US)
  Receive Date: 20120906
  Receipt Date: 20120906
  Transmission Date: 20130627
  Serious: No
  Sender: FDA-Public Use
  Company Number: US-PFIZER INC-2012219002

PATIENT
  Age: 74 Year
  Sex: Female
  Weight: 74.83 kg

DRUGS (3)
  1. LYRICA [Suspect]
     Indication: NERVOUS SYSTEM DISORDER
     Dosage: 75 mg, 2x/day
  2. LYRICA [Suspect]
     Indication: NEURALGIA
     Dosage: 75 mg, daily
     Dates: start: 201208
  3. BENADRYL [Suspect]
     Indication: PRURITUS
     Dosage: 20 mg, as needed
     Route: 048
     Dates: start: 201208

REACTIONS (2)
  - Pruritus [Not Recovered/Not Resolved]
  - Somnolence [Unknown]
